FAERS Safety Report 10736900 (Version 5)
Quarter: 2016Q1

REPORT INFORMATION
  Report Type: Spontaneous
  Country: US (occurrence: US)
  Receive Date: 20150126
  Receipt Date: 20160308
  Transmission Date: 20160525
  Serious: Yes (Hospitalization)
  Sender: FDA-Public Use
  Company Number: US-JNJFOC-20140822700

PATIENT
  Age: 39 Year
  Sex: Female

DRUGS (10)
  1. IMMUNOGLOBULIN G HUMAN [Concomitant]
     Active Substance: HUMAN IMMUNOGLOBULIN G
     Indication: IMMUNE SYSTEM DISORDER
     Route: 042
  2. ASPIRIN. [Concomitant]
     Active Substance: ASPIRIN
  3. VALTREX [Concomitant]
     Active Substance: VALACYCLOVIR HYDROCHLORIDE
     Indication: ANTIVIRAL PROPHYLAXIS
     Route: 048
     Dates: start: 2014
  4. IRON [Concomitant]
     Active Substance: IRON
     Indication: MINERAL SUPPLEMENTATION
     Route: 048
     Dates: start: 201502
  5. IMBRUVICA [Suspect]
     Active Substance: IBRUTINIB
     Indication: CHRONIC LYMPHOCYTIC LEUKAEMIA
     Route: 048
  6. IMBRUVICA [Suspect]
     Active Substance: IBRUTINIB
     Indication: CHRONIC LYMPHOCYTIC LEUKAEMIA
     Route: 048
     Dates: start: 20140501, end: 20140801
  7. FOLIC ACID. [Concomitant]
     Active Substance: FOLIC ACID
     Indication: HUMAN PAPILLOMA VIRUS TEST POSITIVE
     Route: 048
  8. FOLIC ACID. [Concomitant]
     Active Substance: FOLIC ACID
     Indication: SUPPLEMENTATION THERAPY
     Route: 048
  9. IMBRUVICA [Suspect]
     Active Substance: IBRUTINIB
     Indication: CHRONIC LYMPHOCYTIC LEUKAEMIA
     Route: 048
     Dates: start: 20140801
  10. IBUPROFEN. [Concomitant]
     Active Substance: IBUPROFEN

REACTIONS (19)
  - Amenorrhoea [Recovered/Resolved]
  - Pyrexia [Recovered/Resolved]
  - Swelling [Recovered/Resolved]
  - Uterine leiomyoma [Unknown]
  - Dyspepsia [Recovered/Resolved]
  - Abdominal pain [Unknown]
  - Weight increased [Not Recovered/Not Resolved]
  - Arthralgia [Unknown]
  - Diarrhoea [Unknown]
  - Localised infection [Recovered/Resolved]
  - Incontinence [Not Recovered/Not Resolved]
  - Menopausal symptoms [Not Recovered/Not Resolved]
  - Vaginal haemorrhage [Not Recovered/Not Resolved]
  - Fatigue [Unknown]
  - Bacterial infection [Recovered/Resolved]
  - Stomatitis [Recovered/Resolved]
  - Menstruation irregular [Not Recovered/Not Resolved]
  - Ocular hyperaemia [Recovered/Resolved]
  - Hordeolum [Unknown]

NARRATIVE: CASE EVENT DATE: 201407
